FAERS Safety Report 8395316 (Version 3)
Quarter: 2015Q4

REPORT INFORMATION
  Report Type: Report from Study
  Country: US (occurrence: US)
  Receive Date: 20120208
  Receipt Date: 20151012
  Transmission Date: 20160305
  Serious: Yes (Death)
  Sender: FDA-Public Use
  Company Number: US-ASTELLAS-2012US001414

PATIENT
  Sex: Male

DRUGS (22)
  1. ALTIMA [Concomitant]
     Active Substance: PEMETREXED DISODIUM
     Dosage: 500 MG, 0.9%, ONCE DAILY
     Route: 042
  2. VITAMIN B12 [Concomitant]
     Active Substance: CYANOCOBALAMIN
     Indication: PRODUCT USED FOR UNKNOWN INDICATION
     Route: 030
  3. LORTAB [Concomitant]
     Active Substance: ACETAMINOPHEN\HYDROCODONE BITARTRATE
     Indication: PRODUCT USED FOR UNKNOWN INDICATION
     Dosage: 5-500 MG (1 IN 1 D) 4-6 HOURS PRN
     Route: 048
  4. ERLOTINIB [Suspect]
     Active Substance: ERLOTINIB
     Indication: MALIGNANT RESPIRATORY TRACT NEOPLASM
     Route: 048
  5. AVASTIN [Suspect]
     Active Substance: BEVACIZUMAB
     Dosage: 1323 MG, (15 MG/KG) SHORT OVER 90 MINUTES, UNKNOWN FREQ.
     Route: 065
     Dates: start: 20060220
  6. ZOFRAN [Concomitant]
     Active Substance: ONDANSETRON HYDROCHLORIDE
     Indication: VOMITING
     Dosage: 32 MG, 1 IN 1 DAY (30 MIN FOR 1 DAY)
     Route: 042
  7. COUMADIN [Concomitant]
     Active Substance: WARFARIN SODIUM
     Indication: PRODUCT USED FOR UNKNOWN INDICATION
     Dosage: 1 MG, UNKNOWN FREQ. FOR 30 DAYS
     Route: 048
  8. CIPRO                              /00697201/ [Concomitant]
     Active Substance: CIPROFLOXACIN
     Indication: PRODUCT USED FOR UNKNOWN INDICATION
     Route: 048
  9. DECADRON [Concomitant]
     Active Substance: DEXAMETHASONE
     Dosage: 4 MG, 2 IN 1 DAY
     Route: 048
  10. AVASTIN [Suspect]
     Active Substance: BEVACIZUMAB
     Dosage: 1323 MG, 15 MG/KG UNKNOWN FREQ.
     Route: 065
     Dates: start: 20060313
  11. COMPAZINE [Concomitant]
     Active Substance: PROCHLORPERAZINE MALEATE
     Dosage: 10 MG,  (1 IN 1 DAY), 4 HOURS AS NEEDED
     Route: 048
  12. ALOXI [Concomitant]
     Active Substance: PALONOSETRON HYDROCHLORIDE
     Indication: VOMITING
     Dosage: 0.25 MG, UNKNOWN FREQ.
     Route: 042
     Dates: start: 20060220
  13. DECADRON [Concomitant]
     Active Substance: DEXAMETHASONE
     Indication: VOMITING
     Route: 065
  14. ALTIMA [Concomitant]
     Active Substance: PEMETREXED DISODIUM
     Indication: PRODUCT USED FOR UNKNOWN INDICATION
     Dosage: 1085 MG AT 500MG/M2 OF 25 MG/ML, IV SHOT OVER 10 MINUTES FOR 1 DAY IN NORMAL SALINE
     Route: 042
     Dates: start: 20060220
  15. ARANESP [Concomitant]
     Active Substance: DARBEPOETIN ALFA
     Indication: PRODUCT USED FOR UNKNOWN INDICATION
     Dosage: UNK UNK, UNKNOWN FREQ.
     Route: 065
  16. AVASTIN [Suspect]
     Active Substance: BEVACIZUMAB
     Indication: MALIGNANT RESPIRATORY TRACT NEOPLASM
     Dosage: 1323 MG,(15MG/KG) OF 25MG/ML , SHORT OVER 90 MINS IN NORMAL SALINE, EVERY 3 WEEKS
     Route: 042
     Dates: start: 20060130
  17. NEULASTA [Concomitant]
     Active Substance: PEGFILGRASTIM
     Indication: PRODUCT USED FOR UNKNOWN INDICATION
     Route: 065
  18. COMPAZINE [Concomitant]
     Active Substance: PROCHLORPERAZINE MALEATE
     Indication: PRODUCT USED FOR UNKNOWN INDICATION
     Dosage: 25 MG, PRN
     Route: 054
  19. COUMADIN [Concomitant]
     Active Substance: WARFARIN SODIUM
     Route: 065
  20. DEXAMETHASONE SODIUM PHOSPHATE. [Concomitant]
     Active Substance: DEXAMETHASONE SODIUM PHOSPHATE
     Indication: PRODUCT USED FOR UNKNOWN INDICATION
     Dosage: 10 MG OF 10 MG/ML MINUTES FOR 1 DAY, IN 50 ML NS,ONCE DAILY
     Route: 042
     Dates: start: 20060220
  21. AUGMENTIN [Concomitant]
     Active Substance: AMOXICILLIN\CLAVULANATE POTASSIUM
     Indication: PRODUCT USED FOR UNKNOWN INDICATION
     Dosage: 875 MG, PRN
     Route: 048
  22. CYANOCOBALAMIN. [Concomitant]
     Active Substance: CYANOCOBALAMIN
     Indication: PRODUCT USED FOR UNKNOWN INDICATION
     Dosage: 1000 ?G, FOR 1 DAY
     Route: 030

REACTIONS (5)
  - Dyspnoea [Unknown]
  - Fatigue [Unknown]
  - Death [Fatal]
  - Pain [Unknown]
  - Neuropathy peripheral [Unknown]
